FAERS Safety Report 8110932 (Version 4)
Quarter: 2013Q2

REPORT INFORMATION
  Report Type: Spontaneous
  Country: US (occurrence: None)
  Receive Date: 20110817
  Receipt Date: 20130607
  Transmission Date: 20140414
  Serious: Yes (Hospitalization)
  Sender: FDA-Public Use
  Company Number: 2011-2737

PATIENT
  Age: 4 Year
  Sex: Male
  Weight: 13 kg

DRUGS (3)
  1. INCRELEX [Suspect]
     Indication: PRIMARY INSULIN LIKE GROWTH FACTOR-1 DEFICIENCY
     Dosage: SEE IMAGE
     Route: 058
     Dates: start: 20100914, end: 20101227
  2. CHILDREN^S TYLENOL (PARACETAMOL) [Concomitant]
  3. OTIC DROPS (ABX)(ANTIBIOTICS) [Concomitant]

REACTIONS (11)
  - TONSILLAR HYPERTROPHY [None]
  - ADENOIDAL HYPERTROPHY [None]
  - OTITIS MEDIA CHRONIC [None]
  - NASAL TURBINATE HYPERTROPHY [None]
  - PHARYNGITIS STREPTOCOCCAL [None]
  - BREATH ODOUR [None]
  - RASH [None]
  - FACE OEDEMA [None]
  - SINUS CONGESTION [None]
  - DISEASE RECURRENCE [None]
  - Nasal disorder [None]
